FAERS Safety Report 15082118 (Version 1)
Quarter: 2018Q2

REPORT INFORMATION
  Report Type: Spontaneous
  Country: US (occurrence: US)
  Receive Date: 20180607
  Receipt Date: 20180607
  Transmission Date: 20180711
  Serious: No
  Sender: FDA-Public Use
  Company Number: None

PATIENT
  Age: 45 Year
  Sex: Female

DRUGS (2)
  1. LYRICA [Concomitant]
     Active Substance: PREGABALIN
  2. RASUVO [Suspect]
     Active Substance: METHOTREXATE SODIUM
     Dosage: ?          OTHER FREQUENCY:OTHER;?
     Route: 058

REACTIONS (2)
  - Contusion [None]
  - Photophobia [None]

NARRATIVE: CASE EVENT DATE: 20180530
